FAERS Safety Report 6238183-3 (Version None)
Quarter: 2009Q2

REPORT INFORMATION
  Report Type: 
  Country: None (occurrence: None)
  Receive Date: 20090617
  Receipt Date: 20090617
  Transmission Date: 20091009
  Serious: Yes (Other)
  Sender: FDA-Public Use
  Company Number: None

PATIENT
  Age: 60 Year
  Sex: Female
  Weight: 79.3795 kg

DRUGS (1)
  1. PREMARIN [Suspect]
     Indication: HOT FLUSH
     Dosage: 1 ONCE PER DAY PO
     Route: 048
     Dates: start: 19940720, end: 20090612

REACTIONS (2)
  - FEELING ABNORMAL [None]
  - PALPITATIONS [None]
